FAERS Safety Report 9358656 (Version 1)
Quarter: 2013Q2

REPORT INFORMATION
  Report Type: Spontaneous
  Country: JP (occurrence: JP)
  Receive Date: 20130620
  Receipt Date: 20130620
  Transmission Date: 20140414
  Serious: Yes (Hospitalization)
  Sender: FDA-Public Use
  Company Number: JP-GLAXOSMITHKLINE-B0726761A

PATIENT
  Age: 70 Year
  Sex: Male

DRUGS (3)
  1. ALKERAN [Suspect]
     Indication: PLASMA CELL MYELOMA
     Dosage: 10MG PER DAY
     Route: 048
  2. PREDNISOLONE [Suspect]
     Indication: PLASMA CELL MYELOMA
     Dosage: 70MG PER DAY
     Route: 048
  3. ZOMETA [Suspect]
     Indication: PLASMA CELL MYELOMA
     Dosage: 4MG PER DAY
     Route: 042

REACTIONS (5)
  - Cystitis haemorrhagic [Recovered/Resolved]
  - Cardiac tamponade [Unknown]
  - Anaemia [Unknown]
  - Thrombosis [Unknown]
  - Abdominal distension [Unknown]
